FAERS Safety Report 10593302 (Version 1)
Quarter: 2014Q4

REPORT INFORMATION
  Report Type: Spontaneous
  Country: CA (occurrence: CA)
  Receive Date: 20141119
  Receipt Date: 20141119
  Transmission Date: 20150529
  Serious: Yes (Other)
  Sender: FDA-Public Use
  Company Number: CA-ABBVIE-14P-028-1309985-00

PATIENT
  Age: 26 Year
  Sex: Female

DRUGS (4)
  1. BIAXIN [Suspect]
     Active Substance: CLARITHROMYCIN
     Indication: PRODUCT USED FOR UNKNOWN INDICATION
     Route: 065
  2. RIVOTRIL [Suspect]
     Active Substance: CLONAZEPAM
     Indication: PRODUCT USED FOR UNKNOWN INDICATION
     Route: 065
  3. RIVOTRIL [Suspect]
     Active Substance: CLONAZEPAM
     Route: 065
  4. RIVOTRIL [Suspect]
     Active Substance: CLONAZEPAM
     Route: 065

REACTIONS (68)
  - Gastrooesophageal reflux disease [Unknown]
  - Middle insomnia [Unknown]
  - Nausea [Unknown]
  - Psychiatric symptom [Unknown]
  - Road traffic accident [Unknown]
  - Dissociative disorder [Unknown]
  - Disturbance in attention [Unknown]
  - Joint swelling [Unknown]
  - Nervousness [Unknown]
  - Oedema peripheral [Unknown]
  - Pharyngeal oedema [Unknown]
  - Suicidal ideation [Unknown]
  - Menometrorrhagia [Unknown]
  - Ovarian cyst [Unknown]
  - Stress [Unknown]
  - Synovial cyst [Unknown]
  - Tremor [Unknown]
  - Arthropathy [Unknown]
  - Delusion [Unknown]
  - Fatigue [Unknown]
  - Fibroma [Unknown]
  - Hypersomnia [Unknown]
  - Insomnia [Unknown]
  - Pneumonia [Unknown]
  - Somnolence [Unknown]
  - Aggression [Unknown]
  - Amenorrhoea [Unknown]
  - Bronchitis [Unknown]
  - Bursitis [Unknown]
  - Candida infection [Unknown]
  - Conjunctivitis [Unknown]
  - Dysmenorrhoea [Unknown]
  - Hallucination [Unknown]
  - Histrionic personality disorder [Unknown]
  - Vomiting [Unknown]
  - Asthenia [Unknown]
  - Breast cyst [Unknown]
  - Dyspnoea [Unknown]
  - Eating disorder [Unknown]
  - Leiomyoma [Unknown]
  - Mass [Unknown]
  - Pain [Unknown]
  - Psychotic disorder [Unknown]
  - Skin lesion [Unknown]
  - Anxiety [Unknown]
  - Back pain [Unknown]
  - Bipolar I disorder [Unknown]
  - Depressed mood [Unknown]
  - Headache [Unknown]
  - Hypoaesthesia [Unknown]
  - Major depression [Unknown]
  - Nasal congestion [Unknown]
  - Wound [Unknown]
  - Arthralgia [Unknown]
  - Delirium [Unknown]
  - Depersonalisation [Unknown]
  - Dyspepsia [Unknown]
  - Feeling abnormal [Unknown]
  - Hypersensitivity [Unknown]
  - Injury [Unknown]
  - Menorrhagia [Unknown]
  - Pain in extremity [Unknown]
  - Rhinitis allergic [Unknown]
  - Wrist fracture [Unknown]
  - Bipolar disorder [Unknown]
  - Blepharitis [Unknown]
  - Ear pain [Unknown]
  - Exostosis [Unknown]
